FAERS Safety Report 22294537 (Version 2)
Quarter: 2024Q2

REPORT INFORMATION
  Report Type: Spontaneous
  Country: US (occurrence: US)
  Receive Date: 20230508
  Receipt Date: 20240415
  Transmission Date: 20240716
  Serious: No
  Sender: FDA-Public Use
  Company Number: US-ASTELLAS-2022US035727

PATIENT
  Age: 73 Year
  Sex: Male

DRUGS (4)
  1. LEXISCAN [Suspect]
     Active Substance: REGADENOSON
     Indication: Cardiac stress test
     Dosage: UNK UNK, ONCE DAILY
     Route: 042
     Dates: start: 20221004, end: 20221004
  2. LEXISCAN [Suspect]
     Active Substance: REGADENOSON
     Indication: Cardiac stress test
     Dosage: UNK UNK, ONCE DAILY
     Route: 042
     Dates: start: 20221004, end: 20221004
  3. LEXISCAN [Suspect]
     Active Substance: REGADENOSON
     Indication: Cardiac stress test
     Dosage: UNK UNK, ONCE DAILY
     Route: 042
     Dates: start: 20221004, end: 20221004
  4. LEXISCAN [Suspect]
     Active Substance: REGADENOSON
     Indication: Cardiac stress test
     Dosage: UNK UNK, ONCE DAILY
     Route: 042
     Dates: start: 20221004, end: 20221004

REACTIONS (4)
  - Inappropriate affect [Unknown]
  - Injection site extravasation [Unknown]
  - Injection site irritation [Unknown]
  - Pain [Unknown]

NARRATIVE: CASE EVENT DATE: 20221004
